FAERS Safety Report 5863394-6 (Version None)
Quarter: 2008Q3

REPORT INFORMATION
  Report Type: 
  Country: None (occurrence: None)
  Receive Date: 20080828
  Receipt Date: 20080821
  Transmission Date: 20090109
  Serious: Yes (Other)
  Sender: FDA-Public Use
  Company Number: PHBS2007JP20546

PATIENT
  Age: 57 Year
  Sex: Female

DRUGS (15)
  1. CYCLOSPORINE [Suspect]
     Indication: RENAL TRANSPLANT
     Dosage: 300 MG/DAY
     Route: 048
  2. CYCLOSPORINE [Suspect]
     Dosage: 150 MG/DAY
     Route: 048
  3. CYCLOSPORINE [Suspect]
     Dosage: 250 MG/DAY
     Route: 048
  4. CYCLOSPORINE [Suspect]
     Dosage: 3 MG/KG/ D
     Route: 042
  5. SIMULECT [Suspect]
     Indication: RENAL TRANSPLANT
     Dosage: 20 MG, ONCE/SINGLE
     Route: 042
  6. SIMULECT [Suspect]
     Dosage: 20 MG, ONCE/SINGLE
     Route: 042
  7. MIZORIBINE [Suspect]
     Indication: RENAL TRANSPLANT
     Dosage: 300 MG/DAY
  8. PREDNISOLONE [Suspect]
     Indication: RENAL TRANSPLANT
     Dosage: 50 MG/D
  9. PREDNISOLONE [Suspect]
     Dosage: 40 MG/D
  10. PREDNISOLONE [Suspect]
     Dosage: 30 MG/D
  11. PREDNISOLONE [Suspect]
     Dosage: 25 MG/D
  12. PREDNISOLONE [Suspect]
     Dosage: 20 MG/D
  13. PREDNISOLONE [Suspect]
     Dosage: 15 MG/D
  14. PREDNISOLONE [Suspect]
     Dosage: 10 MG/D
  15. METHYLPREDNISOLONE 16MG TAB [Concomitant]
     Indication: RENAL TRANSPLANT
     Dosage: 500MG

REACTIONS (18)
  - ANAEMIA [None]
  - ANTIBODY TEST POSITIVE [None]
  - BLOOD CREATININE INCREASED [None]
  - BLOOD LACTATE DEHYDROGENASE [None]
  - DISSEMINATED INTRAVASCULAR COAGULATION [None]
  - GRAFT VERSUS HOST DISEASE [None]
  - HAEMATOCRIT DECREASED [None]
  - HAEMATURIA [None]
  - HAEMOGLOBIN DECREASED [None]
  - HAEMOLYSIS [None]
  - KIDNEY TRANSPLANT REJECTION [None]
  - OLIGURIA [None]
  - PLATELET COUNT DECREASED [None]
  - PROTEINURIA [None]
  - RED BLOOD CELL ABNORMALITY [None]
  - RED BLOOD CELL SCHISTOCYTES PRESENT [None]
  - RENAL IMPAIRMENT [None]
  - THROMBOTIC MICROANGIOPATHY [None]
